FAERS Safety Report 12076716 (Version 2)
Quarter: 2016Q1

REPORT INFORMATION
  Report Type: Spontaneous
  Country: JP (occurrence: JP)
  Receive Date: 20160215
  Receipt Date: 20160216
  Transmission Date: 20160526
  Serious: Yes (Death, Hospitalization)
  Sender: FDA-Public Use
  Company Number: JP-BAXALTA-2016BXJ000666

PATIENT
  Sex: Male
  Weight: 40 kg

DRUGS (1)
  1. GAMMAGARD [Suspect]
     Active Substance: HUMAN IMMUNOGLOBULIN G
     Indication: HYPOGAMMAGLOBULINAEMIA
     Dosage: 7.5 G, ONCE PER 3 WEEKS
     Route: 042
     Dates: end: 20150925

REACTIONS (1)
  - Pneumonia [Fatal]
